FAERS Safety Report 9787973 (Version 1)
Quarter: 2013Q4

REPORT INFORMATION
  Report Type: Spontaneous
  Country: US (occurrence: None)
  Receive Date: 20131227
  Receipt Date: 20131227
  Transmission Date: 20140711
  Serious: Yes (Death)
  Sender: FDA-Public Use
  Company Number: None

PATIENT
  Age: 82 None
  Sex: Female
  Weight: 68.2 kg

DRUGS (5)
  1. EC ASA [Suspect]
     Indication: DEEP VEIN THROMBOSIS
     Dosage: 81MG  DAILY  PO?RECENT
     Route: 048
  2. WARFARIN [Suspect]
     Indication: DEEP VEIN THROMBOSIS
     Dosage: 2.5MG  DAILY PO?CHRONIC
     Route: 048
  3. LOVASTATIN [Concomitant]
  4. ADVAIR DISKUS [Concomitant]
  5. METOPROLOL SUCCINATE [Concomitant]

REACTIONS (4)
  - Subdural haematoma [None]
  - Subdural haemorrhage [None]
  - Intracranial pressure increased [None]
  - Brain midline shift [None]
